FAERS Safety Report 23142667 (Version 2)
Quarter: 2023Q4

REPORT INFORMATION
  Report Type: Spontaneous
  Country: US (occurrence: US)
  Receive Date: 20231103
  Receipt Date: 20231109
  Transmission Date: 20240110
  Serious: No
  Sender: FDA-Public Use
  Company Number: US-JNJFOC-20231053479

PATIENT

DRUGS (6)
  1. TYLENOL [Suspect]
     Active Substance: ACETAMINOPHEN
     Indication: Headache
     Route: 065
  2. TYLENOL [Suspect]
     Active Substance: ACETAMINOPHEN
     Indication: Nausea
  3. TYLENOL [Suspect]
     Active Substance: ACETAMINOPHEN
     Indication: Dizziness
  4. TYLENOL [Suspect]
     Active Substance: ACETAMINOPHEN
     Indication: Stomatitis
  5. TYLENOL [Suspect]
     Active Substance: ACETAMINOPHEN
     Indication: Limb discomfort
  6. INLYTA [Concomitant]
     Active Substance: AXITINIB
     Indication: Product used for unknown indication
     Route: 065

REACTIONS (2)
  - Product use in unapproved indication [Unknown]
  - Drug ineffective [Unknown]
